FAERS Safety Report 25050035 (Version 1)
Quarter: 2025Q1

REPORT INFORMATION
  Report Type: Spontaneous
  Country: US (occurrence: US)
  Receive Date: 20250307
  Receipt Date: 20250307
  Transmission Date: 20250408
  Serious: Yes (Life-Threatening, Hospitalization)
  Sender: CHEPLAPHARM
  Company Number: US-ROCHE-2372821

PATIENT
  Age: 58 Year
  Sex: Male
  Weight: 94.599 kg

DRUGS (23)
  1. CAPECITABINE [Suspect]
     Active Substance: CAPECITABINE
     Indication: Gastrooesophageal cancer
     Route: 048
     Dates: start: 20140320
  2. TRASTUZUMAB [Suspect]
     Active Substance: TRASTUZUMAB
     Indication: Gastrooesophageal cancer
     Route: 042
     Dates: start: 20140320
  3. BEVACIZUMAB [Suspect]
     Active Substance: BEVACIZUMAB
     Indication: Gastrooesophageal cancer
     Route: 042
     Dates: start: 20140320
  4. OXALIPLATIN [Suspect]
     Active Substance: OXALIPLATIN
     Indication: Gastrooesophageal cancer
     Route: 042
     Dates: start: 20140320
  5. ASPIRIN [Concomitant]
     Active Substance: ASPIRIN
  6. CITALOPRAM [Concomitant]
     Active Substance: CITALOPRAM
  7. COLACE [Concomitant]
     Active Substance: DOCUSATE SODIUM
  8. COMPAZINE [Concomitant]
     Active Substance: PROCHLORPERAZINE MALEATE
  9. DECADRON [Concomitant]
     Active Substance: DEXAMETHASONE
  10. LOMOTIL [Concomitant]
     Active Substance: ATROPINE SULFATE\DIPHENOXYLATE HYDROCHLORIDE
  11. LOPERAMIDE [Concomitant]
     Active Substance: LOPERAMIDE
  12. LORAZEPAM [Concomitant]
     Active Substance: LORAZEPAM
  13. LOVENOX [Concomitant]
     Active Substance: ENOXAPARIN SODIUM
  14. MIRALAX [Concomitant]
     Active Substance: POLYETHYLENE GLYCOL 3350
  15. OMEPRAZOLE [Concomitant]
     Active Substance: OMEPRAZOLE
  16. ONDANSETRON HYDROCHLORIDE [Concomitant]
     Active Substance: ONDANSETRON HYDROCHLORIDE
  17. OXYCODONE [Concomitant]
     Active Substance: OXYCODONE
  18. DIETARY SUPPLEMENT [Concomitant]
     Active Substance: DIETARY SUPPLEMENT
  19. SENNA [Concomitant]
     Active Substance: SENNOSIDES
  20. UREA [Concomitant]
     Active Substance: UREA
  21. VITAMIN D3 [Concomitant]
     Active Substance: CHOLECALCIFEROL
  22. ZICAM [Concomitant]
  23. ZOLPIDEM [Concomitant]
     Active Substance: ZOLPIDEM TARTRATE

REACTIONS (3)
  - Syncope [Recovered/Resolved]
  - Anaemia [Recovered/Resolved]
  - Oesophageal haemorrhage [Unknown]

NARRATIVE: CASE EVENT DATE: 20140805
